FAERS Safety Report 4833629-7 (Version None)
Quarter: 2005Q4

REPORT INFORMATION
  Report Type: 
  Country: None (occurrence: None)
  Receive Date: 20051121
  Receipt Date: 20051110
  Transmission Date: 20060501
  Serious: Yes (Hospitalization)
  Sender: FDA-Public Use
  Company Number: PHNU2005DE03712

PATIENT
  Sex: Male

DRUGS (15)
  1. CLOZARIL [Suspect]
     Indication: SCHIZOPHRENIA, PARANOID TYPE
     Dosage: UP TO 100 MG, QD
     Route: 048
     Dates: start: 20040521, end: 20040608
  2. CLOZARIL [Suspect]
     Dosage: UP TO 150 MG, QD
     Route: 048
     Dates: start: 20040609, end: 20040611
  3. CLOZARIL [Suspect]
     Dosage: UP TO 175 MG, QD
     Route: 048
     Dates: start: 20040612, end: 20040614
  4. NIPOLEPT [Suspect]
     Dosage: 250 MG, QD
     Route: 048
     Dates: start: 20030201, end: 20040602
  5. NIPOLEPT [Suspect]
     Dosage: 200 MG, QD
     Route: 048
     Dates: start: 20040603, end: 20040603
  6. NIPOLEPT [Suspect]
     Dosage: 175 MG, QD
     Route: 048
     Dates: start: 20040604, end: 20040604
  7. NIPOLEPT [Suspect]
     Dosage: 150 MG, QD
     Route: 048
     Dates: start: 20040605, end: 20040609
  8. NIPOLEPT [Suspect]
     Dosage: 100 MG, QD
     Route: 048
     Dates: start: 20040609, end: 20040610
  9. NIPOLEPT [Suspect]
     Dosage: 50 MG, QD
     Route: 048
     Dates: start: 20040611, end: 20040614
  10. NIPOLEPT [Suspect]
     Dosage: 300 MG, QD
     Route: 048
     Dates: start: 19960101
  11. ZYPREXA [Suspect]
     Dosage: 20 MG, QD
     Route: 048
     Dates: start: 20030101, end: 20030701
  12. ZYPREXA [Suspect]
     Dosage: 25 MG, QD
     Route: 048
     Dates: start: 20030701
  13. ZYPREXA [Suspect]
     Route: 048
     Dates: start: 20040101
  14. CIATYL-Z [Suspect]
     Dosage: 400 MG, BIW
     Dates: start: 19980101
  15. RISPERDAL [Suspect]
     Dosage: 25 MG, BIW
     Dates: start: 20031001

REACTIONS (7)
  - BLOOD SODIUM DECREASED [None]
  - CEREBRAL ATROPHY [None]
  - COMMUNICATION DISORDER [None]
  - COMPUTERISED TOMOGRAM ABNORMAL [None]
  - ELECTROENCEPHALOGRAM ABNORMAL [None]
  - FALL [None]
  - GRAND MAL CONVULSION [None]
